FAERS Safety Report 10416991 (Version 1)
Quarter: 2014Q3

REPORT INFORMATION
  Report Type: Spontaneous
  Country: IT (occurrence: None)
  Receive Date: 20140826
  Receipt Date: 20140826
  Transmission Date: 20150326
  Serious: Yes (Hospitalization)
  Sender: FDA-Public Use
  Company Number: FK201403384

PATIENT
  Age: 70 Year
  Sex: Female

DRUGS (5)
  1. ZOFRAN (ONDANSETRON) [Concomitant]
  2. SOLDESAM (DEXAMETHASONE SODIUM PHOSPHATE) [Concomitant]
  3. FLUOROURACILE [Suspect]
     Active Substance: FLUOROURACIL
     Indication: COLON CANCER
     Dosage: 2400 MG, CYCLICAL, INTRAVENOUS (NOT OTHERWISE SPECIFIED)?
     Route: 042
     Dates: start: 20140521, end: 20140523
  4. LEVOFOLENE (CALCIUM LEVOFOLINATE) [Concomitant]
  5. IRINOTECAN [Suspect]
     Active Substance: IRINOTECAN
     Indication: COLON CANCER
     Route: 041
     Dates: start: 20140521, end: 20140521

REACTIONS (2)
  - Pseudomonal sepsis [None]
  - Pancytopenia [None]

NARRATIVE: CASE EVENT DATE: 20140529
